FAERS Safety Report 18563620 (Version 1)
Quarter: 2020Q4

REPORT INFORMATION
  Report Type: Spontaneous
  Country: US (occurrence: US)
  Receive Date: 20201201
  Receipt Date: 20201201
  Transmission Date: 20210114
  Serious: Yes (Other)
  Sender: FDA-Public Use
  Company Number: NVSC2020US316481

PATIENT
  Age: 58 Year
  Sex: Female

DRUGS (3)
  1. HYDROXYCHLOROQUINE SULFATE TABLETS USP [Suspect]
     Active Substance: HYDROXYCHLOROQUINE SULFATE
     Indication: COVID-19
     Dosage: UNK
     Route: 065
  2. ISOPROTERENOL. [Concomitant]
     Active Substance: ISOPROTERENOL
     Indication: COVID-19
     Dosage: 2 UG BOLUS
     Route: 041
  3. ISOPROTERENOL. [Concomitant]
     Active Substance: ISOPROTERENOL
     Dosage: 1 UG/MIN
     Route: 041

REACTIONS (2)
  - Electrocardiogram QT prolonged [Unknown]
  - Product use in unapproved indication [Unknown]
